FAERS Safety Report 20596847 (Version 6)
Quarter: 2022Q4

REPORT INFORMATION
  Report Type: Spontaneous
  Country: US (occurrence: US)
  Receive Date: 20220315
  Receipt Date: 20221108
  Transmission Date: 20230113
  Serious: No
  Sender: FDA-Public Use
  Company Number: US-PFIZER INC-202200271113

PATIENT
  Age: 39 Year
  Sex: Male
  Weight: 106.59 kg

DRUGS (1)
  1. SOMATROPIN [Suspect]
     Active Substance: SOMATROPIN
     Indication: Growth hormone deficiency
     Dosage: .4 MG (.4MG ONCE EVERY FOUR DAYS TO THE ABDOMINAL AREA SUBQ)
     Route: 058

REACTIONS (3)
  - Poor quality device used [Unknown]
  - Device defective [Unknown]
  - Device leakage [Unknown]

NARRATIVE: CASE EVENT DATE: 20220214
